FAERS Safety Report 4502563-4 (Version None)
Quarter: 2004Q4

REPORT INFORMATION
  Report Type: 
  Country: None (occurrence: None)
  Receive Date: 20041110
  Receipt Date: 20040820
  Transmission Date: 20050328
  Serious: Yes (Hospitalization)
  Sender: FDA-Public Use
  Company Number: 2004-BP-07056AU

PATIENT

DRUGS (1)
  1. SPIRIVA [Suspect]
     Dosage: 18 MCG (18 MCG ONE DAILY)

REACTIONS (3)
  - LOWER RESPIRATORY TRACT INFECTION [None]
  - PALPITATIONS [None]
  - TACHYCARDIA [None]
